FAERS Safety Report 14683745 (Version 2)
Quarter: 2019Q1

REPORT INFORMATION
  Report Type: Spontaneous
  Country: US (occurrence: US)
  Receive Date: 20180327
  Receipt Date: 20190225
  Transmission Date: 20190417
  Serious: Yes (Hospitalization, Other)
  Sender: FDA-Public Use
  Company Number: US-ASTRAZENECA-2018SE34846

PATIENT
  Age: 18130 Day
  Sex: Male
  Weight: 179.6 kg

DRUGS (29)
  1. NEXIUM [Suspect]
     Active Substance: ESOMEPRAZOLE MAGNESIUM
     Route: 048
     Dates: start: 20120817
  2. CLONIDINE. [Concomitant]
     Active Substance: CLONIDINE
  3. FUROSEMIDE. [Concomitant]
     Active Substance: FUROSEMIDE
  4. EPOGEN [Concomitant]
     Active Substance: ERYTHROPOIETIN
  5. GLYBURIDE. [Concomitant]
     Active Substance: GLYBURIDE
  6. GLIPIZIDE. [Concomitant]
     Active Substance: GLIPIZIDE
  7. BACTROBAN [Concomitant]
     Active Substance: MUPIROCIN\MUPIROCIN CALCIUM
  8. PRILOSEC [Concomitant]
     Active Substance: OMEPRAZOLE MAGNESIUM
  9. SENOKOT [Concomitant]
     Active Substance: SENNOSIDES
  10. VITAMIN B COMPLEX-VITAMIN C [Concomitant]
  11. METFORMIN [Concomitant]
     Active Substance: METFORMIN HYDROCHLORIDE
  12. NORVASC [Concomitant]
     Active Substance: AMLODIPINE BESYLATE
  13. HYDROCHLOROTHIAZIDE. [Concomitant]
     Active Substance: HYDROCHLOROTHIAZIDE
  14. PREDNISONE. [Concomitant]
     Active Substance: PREDNISONE
  15. LIPITOR [Concomitant]
     Active Substance: ATORVASTATIN CALCIUM
  16. CALCIUM ACETATE. [Concomitant]
     Active Substance: CALCIUM ACETATE
  17. HUMULIN NOS [Concomitant]
     Active Substance: INSULIN HUMAN
  18. NEXIUM [Suspect]
     Active Substance: ESOMEPRAZOLE MAGNESIUM
     Route: 048
     Dates: start: 2012, end: 2016
  19. ATROVENT [Concomitant]
     Active Substance: IPRATROPIUM BROMIDE
  20. ASPIRIN. [Concomitant]
     Active Substance: ASPIRIN
  21. HEPARIN [Concomitant]
     Active Substance: HEPARIN SODIUM
  22. PROTONIX [Suspect]
     Active Substance: PANTOPRAZOLE SODIUM
     Dosage: GENERIC
     Route: 048
  23. CARVEDILOL. [Concomitant]
     Active Substance: CARVEDILOL
  24. COZAAR [Concomitant]
     Active Substance: LOSARTAN POTASSIUM
  25. PROTONIX [Suspect]
     Active Substance: PANTOPRAZOLE SODIUM
     Route: 048
     Dates: start: 2012, end: 2016
  26. ALBUTEROL. [Concomitant]
     Active Substance: ALBUTEROL
  27. FERRLECIT [Concomitant]
     Active Substance: SODIUM FERRIC GLUCONATE COMPLEX
  28. SLOW MAG [Concomitant]
     Active Substance: MAGNESIUM CHLORIDE
  29. LOPID [Concomitant]
     Active Substance: GEMFIBROZIL

REACTIONS (5)
  - Chronic kidney disease [Unknown]
  - End stage renal disease [Unknown]
  - Nephrogenic anaemia [Unknown]
  - Renal failure [Unknown]
  - Acute kidney injury [Unknown]

NARRATIVE: CASE EVENT DATE: 20130707
